FAERS Safety Report 8826410 (Version 2)
Quarter: 2013Q1

REPORT INFORMATION
  Report Type: Spontaneous
  Country: US (occurrence: US)
  Receive Date: 20121005
  Receipt Date: 20130107
  Transmission Date: 20140127
  Serious: No
  Sender: FDA-Public Use
  Company Number: US-BAUSCH-BL-2012-000424

PATIENT
  Age: 70 Year
  Sex: Female

DRUGS (7)
  1. ZIRGAN [Suspect]
     Indication: POSTOPERATIVE CARE
     Dosage: 1 DROP IN EYE(S); FIVE TIMES DAILY
     Route: 047
     Dates: start: 20120628, end: 20120803
  2. ZIRGAN [Suspect]
     Indication: OFF LABEL USE
  3. CARMELLOSE [Concomitant]
  4. ASCORBIC ACID [Concomitant]
  5. HYDROCHLOROTHIAZIDE [Concomitant]
     Indication: FLUID RETENTION
  6. NEPAFENAC [Concomitant]
  7. GATIFLOXACIN [Concomitant]

REACTIONS (1)
  - Visual acuity reduced [Not Recovered/Not Resolved]
